FAERS Safety Report 21407870 (Version 1)
Quarter: 2022Q4

REPORT INFORMATION
  Report Type: Report from Study
  Country: US (occurrence: None)
  Receive Date: 20221004
  Receipt Date: 20221004
  Transmission Date: 20230112
  Serious: Yes (Other)
  Sender: FDA-Public Use
  Company Number: US-Merck Healthcare KGaA-9354779

PATIENT
  Sex: Female

DRUGS (4)
  1. MAVENCLAD [Suspect]
     Active Substance: CLADRIBINE
     Indication: Multiple sclerosis
     Dosage: YEAR ONE MONTH ONE THERAPY
     Route: 048
     Dates: start: 20210130, end: 20210203
  2. MAVENCLAD [Suspect]
     Active Substance: CLADRIBINE
     Dosage: YEAR ONE MONTH TWO THERAPY
     Route: 048
     Dates: start: 20210305, end: 20210309
  3. MAVENCLAD [Suspect]
     Active Substance: CLADRIBINE
     Dosage: YEAR TWO MONTH ONE THERAPY:TWO TABLETS ON DAYS 1 TO 3 AND ONE TABLET ON DAYS 4 TO 5
     Route: 048
     Dates: start: 20220112, end: 20220116
  4. MAVENCLAD [Suspect]
     Active Substance: CLADRIBINE
     Dosage: YEAR TWO MONTH TWO THERAPY:TWO TABLETS ON DAYS 1 TO 2 AND ONE TABLET ON DAYS 3 TO 5
     Route: 048
     Dates: start: 20220210, end: 20220214

REACTIONS (3)
  - Atypical pneumonia [Unknown]
  - Candida infection [Unknown]
  - Multiple sclerosis relapse [Unknown]
